FAERS Safety Report 18077603 (Version 2)
Quarter: 2020Q3

REPORT INFORMATION
  Report Type: Spontaneous
  Country: US (occurrence: US)
  Receive Date: 20200727
  Receipt Date: 20200824
  Transmission Date: 20201103
  Serious: No
  Sender: FDA-Public Use
  Company Number: US-ASTRAZENECA-2020SE91563

PATIENT
  Age: 28777 Day
  Sex: Female
  Weight: 84 kg

DRUGS (6)
  1. LYNPARZA [Suspect]
     Active Substance: OLAPARIB
     Indication: MESOTHELIOMA
     Route: 048
     Dates: start: 202006, end: 20200618
  2. LYNPARZA [Suspect]
     Active Substance: OLAPARIB
     Indication: MESOTHELIOMA
     Route: 048
     Dates: start: 20200512, end: 20200608
  3. BENICAR [Concomitant]
     Active Substance: OLMESARTAN MEDOXOMIL
     Indication: HYPERTENSION
     Dosage: 20.0MG UNKNOWN
     Dates: start: 2017
  4. LISINOPRIL. [Suspect]
     Active Substance: LISINOPRIL
     Route: 048
  5. LEVOFLOXACIN. [Concomitant]
     Active Substance: LEVOFLOXACIN
     Indication: BLISTER INFECTED
     Route: 048
     Dates: start: 20200713
  6. LYNPARZA [Suspect]
     Active Substance: OLAPARIB
     Indication: MESOTHELIOMA
     Route: 048
     Dates: start: 20200512

REACTIONS (3)
  - Drug hypersensitivity [Unknown]
  - Blister [Recovering/Resolving]
  - Blister infected [Unknown]

NARRATIVE: CASE EVENT DATE: 20200618
